FAERS Safety Report 9429019 (Version 2)
Quarter: 2013Q3

REPORT INFORMATION
  Report Type: Spontaneous
  Country: BE (occurrence: BE)
  Receive Date: 20130730
  Receipt Date: 20130806
  Transmission Date: 20140515
  Serious: Yes (Other)
  Sender: FDA-Public Use
  Company Number: BE-UCBSA-092650

PATIENT
  Age: 76 Year
  Sex: Male

DRUGS (4)
  1. CIMZIA [Suspect]
     Indication: RHEUMATOID ARTHRITIS
     Route: 058
     Dates: start: 20110530
  2. LEDERTREXATE [Concomitant]
     Dosage: DOSE: 15 MG
  3. NERUAN [Concomitant]
     Dosage: DOSE: 20 MG
  4. SOTALOL [Concomitant]

REACTIONS (2)
  - Deep vein thrombosis [Recovered/Resolved with Sequelae]
  - Erysipelas [Unknown]
